FAERS Safety Report 15767470 (Version 2)
Quarter: 2019Q2

REPORT INFORMATION
  Report Type: Spontaneous
  Country: US (occurrence: US)
  Receive Date: 20181227
  Receipt Date: 20190425
  Transmission Date: 20190711
  Serious: Yes (Hospitalization)
  Sender: FDA-Public Use
  Company Number: US-JNJFOC-20181230928

PATIENT
  Age: 47 Year
  Sex: Female

DRUGS (1)
  1. INVOKANA [Suspect]
     Active Substance: CANAGLIFLOZIN
     Indication: DIABETES MELLITUS
     Route: 048
     Dates: start: 20170104

REACTIONS (4)
  - Necrotising fasciitis [Recovered/Resolved]
  - Urinary tract infection fungal [Recovering/Resolving]
  - Sepsis [Recovering/Resolving]
  - Groin abscess [Unknown]

NARRATIVE: CASE EVENT DATE: 20171017
